FAERS Safety Report 10409785 (Version 1)
Quarter: 2014Q3

REPORT INFORMATION
  Report Type: Spontaneous
  Country: IT (occurrence: None)
  Receive Date: 20140707
  Receipt Date: 20140707
  Transmission Date: 20150326
  Serious: Yes (Other)
  Sender: FDA-Public Use
  Company Number: AUR-APL-2014-06101

PATIENT
  Age: 65 Year
  Sex: Female

DRUGS (7)
  1. AMITRIPTULINE (AMITRIPTYLINE) [Concomitant]
  2. GABAPENTIN (GABAPENTIN) [Concomitant]
     Active Substance: GABAPENTIN
  3. PERPYHENAZINE (PERPHENAZINE) [Concomitant]
  4. DELORAZEPAM  (DELORAZEPAM) [Concomitant]
     Active Substance: DELORAZEPAM
  5. IMIPRAMINE (IMIPRAMINE) [Concomitant]
  6. PAROXETINE 20MG (PAROXETINE) UNKNOWN, 20MG [Suspect]
     Active Substance: PAROXETINE\PAROXETINE HYDROCHLORIDE
     Indication: ANTIDEPRESSANT THERAPY
     Route: 048
  7. TRAZODONE [Concomitant]
     Active Substance: TRAZODONE HYDROCHLORIDE

REACTIONS (8)
  - Syncope [None]
  - Fall [None]
  - Wound [None]
  - Hypotension [None]
  - Stress cardiomyopathy [None]
  - Mitral valve incompetence [None]
  - Drug withdrawal syndrome [None]
  - Arteriospasm coronary [None]
